FAERS Safety Report 7687880-1 (Version None)
Quarter: 2011Q3

REPORT INFORMATION
  Report Type: 
  Country: None (occurrence: None)
  Receive Date: 20110817
  Receipt Date: 20110810
  Transmission Date: 20111222
  Serious: Yes (Hospitalization, Disabling)
  Sender: FDA-Public Use
  Company Number: DE-B.I. PHARMACEUTICALS,INC./RIDGEFIELD-2010-DE-01569DE

PATIENT
  Sex: Female
  Weight: 110 kg

DRUGS (4)
  1. PRADAXA [Suspect]
     Indication: THROMBOSIS PROPHYLAXIS
     Dosage: 220 MG
     Route: 048
     Dates: start: 20100226, end: 20100307
  2. PRADAXA [Suspect]
     Indication: KNEE ARTHROPLASTY
  3. TRANEXAMIC ACID [Suspect]
     Indication: HAEMORRHAGE
     Dosage: 3 G
     Route: 048
     Dates: start: 20100305, end: 20100312
  4. PRADAXA [Suspect]
     Indication: HIP ARTHROPLASTY

REACTIONS (2)
  - DRUG INEFFECTIVE [None]
  - DEEP VEIN THROMBOSIS [None]
